FAERS Safety Report 6538606-6 (Version None)
Quarter: 2010Q1

REPORT INFORMATION
  Report Type: 
  Country: None (occurrence: None)
  Receive Date: 20100113
  Receipt Date: 20100113
  Transmission Date: 20100710
  Serious: No
  Sender: FDA-Public Use
  Company Number: None

PATIENT
  Age: 72 Year
  Sex: Male
  Weight: 121 kg

DRUGS (28)
  1. CEFEPIME [Suspect]
     Indication: PNEUMONIA
     Dosage: 1 GM Q12 IV
     Route: 042
     Dates: start: 20091027, end: 20091031
  2. REGLAN [Concomitant]
  3. ZOFRAN [Concomitant]
  4. LASIX [Concomitant]
  5. AMBIEN [Concomitant]
  6. ATIVAN [Concomitant]
  7. CAPSAIN [Concomitant]
  8. IMODIUM [Concomitant]
  9. POTASSIUM CHLORIDE [Concomitant]
  10. LOPRESSOR [Concomitant]
  11. MORPHINE [Concomitant]
  12. OXYCODONE [Concomitant]
  13. PHENERGAN HCL [Concomitant]
  14. ADVAIR [Concomitant]
  15. AZULFIDINE [Concomitant]
  16. CARDIZEM [Concomitant]
  17. DECADRON [Concomitant]
  18. DUONEB [Concomitant]
  19. LANOXIN [Concomitant]
  20. LOVENOX [Concomitant]
  21. NEXIUM [Concomitant]
  22. PERCOCET [Concomitant]
  23. QUESTRAN [Concomitant]
  24. SPIRIVA [Concomitant]
  25. VYTORIN [Concomitant]
  26. PERFORON RT [Concomitant]
  27. LIPIDS [Concomitant]
  28. TPN [Concomitant]

REACTIONS (1)
  - RASH [None]
